FAERS Safety Report 10686583 (Version 3)
Quarter: 2015Q1

REPORT INFORMATION
  Report Type: Report from Study
  Country: US (occurrence: US)
  Receive Date: 20150101
  Receipt Date: 20150106
  Transmission Date: 20150720
  Serious: Yes (Hospitalization, Other)
  Sender: FDA-Public Use
  Company Number: US-BIOGENIDEC-2014BI087945

PATIENT
  Age: 52 Year
  Sex: Male

DRUGS (13)
  1. PREVACID [Concomitant]
     Active Substance: LANSOPRAZOLE
     Indication: GASTRIC DISORDER
  2. BACLOFEN. [Concomitant]
     Active Substance: BACLOFEN
     Dates: start: 2011
  3. OXYCONTIN [Concomitant]
     Active Substance: OXYCODONE HYDROCHLORIDE
  4. CORTIZONE 10 [Concomitant]
     Active Substance: HYDROCORTISONE
  5. TECFIDERA [Suspect]
     Active Substance: DIMETHYL FUMARATE
     Indication: RELAPSING-REMITTING MULTIPLE SCLEROSIS
     Route: 048
     Dates: start: 20140701
  6. OXYCONTIN [Concomitant]
     Active Substance: OXYCODONE HYDROCHLORIDE
     Dates: start: 2007
  7. AMBIEN [Concomitant]
     Active Substance: ZOLPIDEM TARTRATE
  8. TECFIDERA [Suspect]
     Active Substance: DIMETHYL FUMARATE
     Indication: RELAPSING-REMITTING MULTIPLE SCLEROSIS
     Route: 048
     Dates: start: 20140624, end: 20140630
  9. ADDERALL [Concomitant]
     Active Substance: AMPHETAMINE ASPARTATE\AMPHETAMINE SULFATE\DEXTROAMPHETAMINE SACCHARATE\DEXTROAMPHETAMINE SULFATE
  10. SOLU-MEDROL [Concomitant]
     Active Substance: METHYLPREDNISOLONE SODIUM SUCCINATE
  11. GABAPENTIN. [Concomitant]
     Active Substance: GABAPENTIN
  12. ANDROGEL [Concomitant]
     Active Substance: TESTOSTERONE
  13. TERAZOL [Concomitant]
     Active Substance: TERCONAZOLE

REACTIONS (9)
  - Back injury [Not Recovered/Not Resolved]
  - Multiple sclerosis relapse [Unknown]
  - Intervertebral disc protrusion [Unknown]
  - Liver function test abnormal [Unknown]
  - Hyperaesthesia [Not Recovered/Not Resolved]
  - Road traffic accident [Recovered/Resolved]
  - Hepatomegaly [Unknown]
  - Muscle spasms [Not Recovered/Not Resolved]
  - Pain [Not Recovered/Not Resolved]

NARRATIVE: CASE EVENT DATE: 2014
